FAERS Safety Report 22081423 (Version 3)
Quarter: 2023Q2

REPORT INFORMATION
  Report Type: Spontaneous
  Country: US (occurrence: US)
  Receive Date: 20230309
  Receipt Date: 20230504
  Transmission Date: 20230721
  Serious: Yes (Hospitalization, Other)
  Sender: FDA-Public Use
  Company Number: US-ALVOGEN-2023089339

PATIENT
  Age: 60 Year
  Sex: Male
  Weight: 144.21 kg

DRUGS (3)
  1. LISINOPRIL [Suspect]
     Active Substance: LISINOPRIL
     Indication: Blood pressure increased
     Dates: start: 201809, end: 201811
  2. XTANDI [Suspect]
     Active Substance: ENZALUTAMIDE
     Indication: Prostate cancer
     Dosage: EXPIRATION DATE: 30-NOV-2025
     Dates: start: 2015
  3. XTANDI [Suspect]
     Active Substance: ENZALUTAMIDE
     Indication: Prostate cancer
     Dates: start: 201601

REACTIONS (6)
  - Loss of consciousness [Recovered/Resolved]
  - Femur fracture [Unknown]
  - Fall [Unknown]
  - Blood pressure decreased [Recovered/Resolved]
  - Headache [Recovered/Resolved]
  - Dizziness [Recovered/Resolved]

NARRATIVE: CASE EVENT DATE: 20181001
